FAERS Safety Report 11314010 (Version 2)
Quarter: 2016Q4

REPORT INFORMATION
  Report Type: Spontaneous
  Country: JP (occurrence: JP)
  Receive Date: 20150727
  Receipt Date: 20161006
  Transmission Date: 20170206
  Serious: Yes (Other)
  Sender: FDA-Public Use
  Company Number: JP-ELI_LILLY_AND_COMPANY-JP201507005538

PATIENT
  Age: 62 Year
  Sex: Female

DRUGS (16)
  1. HALOPERIDOL. [Suspect]
     Active Substance: HALOPERIDOL
     Dosage: UNK
     Route: 048
  2. PEROSPIRONE [Suspect]
     Active Substance: PEROSPIRONE
     Dosage: UNK
     Route: 048
  3. SODIUM VALPROATE [Concomitant]
     Active Substance: VALPROATE SODIUM
     Dosage: UNK
  4. CHLORPROMAZINE. [Suspect]
     Active Substance: CHLORPROMAZINE
     Indication: SCHIZOPHRENIA
     Dosage: UNK
     Route: 048
  5. SODIUM VALPROATE [Concomitant]
     Active Substance: VALPROATE SODIUM
     Dosage: UNK
  6. SODIUM VALPROATE [Concomitant]
     Active Substance: VALPROATE SODIUM
     Dosage: UNK
  7. PEROSPIRONE [Suspect]
     Active Substance: PEROSPIRONE
     Indication: SCHIZOPHRENIA
     Dosage: UNK
     Route: 048
  8. HALOPERIDOL. [Suspect]
     Active Substance: HALOPERIDOL
     Indication: SCHIZOPHRENIA
     Dosage: UNK
     Route: 048
  9. BIPERIDEN [Concomitant]
     Active Substance: BIPERIDEN
     Dosage: UNK
     Route: 048
  10. PALIPERIDONA [Suspect]
     Active Substance: PALIPERIDONE
     Indication: SCHIZOPHRENIA
     Dosage: UNK
     Route: 048
  11. PEROSPIRONE [Suspect]
     Active Substance: PEROSPIRONE
     Dosage: UNK
     Route: 048
  12. SODIUM VALPROATE [Concomitant]
     Active Substance: VALPROATE SODIUM
     Dosage: UNK
  13. FLUNITRAZEPAM [Concomitant]
     Active Substance: FLUNITRAZEPAM
     Dosage: UNK
     Route: 048
  14. ZOLPIDEM [Concomitant]
     Active Substance: ZOLPIDEM\ZOLPIDEM TARTRATE
     Dosage: UNK
     Route: 048
  15. HALOPERIDOL. [Suspect]
     Active Substance: HALOPERIDOL
     Dosage: UNK
     Route: 048
  16. ZYPREXA [Suspect]
     Active Substance: OLANZAPINE
     Indication: SCHIZOPHRENIA
     Dosage: 20 MG, QD
     Route: 048

REACTIONS (6)
  - Schizophrenia [Recovering/Resolving]
  - Orthostatic hypotension [Unknown]
  - Extrapyramidal disorder [Unknown]
  - Hyperprolactinaemia [Unknown]
  - Diet refusal [Recovered/Resolved]
  - Constipation [Unknown]
